FAERS Safety Report 5737355-1 (Version None)
Quarter: 2008Q2

REPORT INFORMATION
  Report Type: 
  Country: None (occurrence: None)
  Receive Date: 20080514
  Receipt Date: 20080117
  Transmission Date: 20081010
  Serious: Yes (Hospitalization)
  Sender: FDA-Public Use
  Company Number: US-BRISTOL-MYERS SQUIBB COMPANY-14006266

PATIENT
  Age: 53 Year
  Sex: Female

DRUGS (3)
  1. IXEMPRA FOR INJ [Suspect]
     Indication: BREAST CANCER
     Dosage: DRUG ADMINISTERED AGAIN AT 50% REDUCTION (35 MG) ON 26-DEC-2007.
     Route: 042
     Dates: start: 20071126
  2. BENADRYL [Concomitant]
     Route: 042
  3. TAGAMET [Concomitant]
     Route: 042

REACTIONS (3)
  - ARTHRALGIA [None]
  - FEBRILE NEUTROPENIA [None]
  - INSOMNIA [None]
